FAERS Safety Report 4536545-3 (Version None)
Quarter: 2004Q4

REPORT INFORMATION
  Report Type: 
  Country: None (occurrence: None)
  Receive Date: 20041220
  Receipt Date: 20041208
  Transmission Date: 20050328
  Serious: Yes (Life-Threatening, Other)
  Sender: FDA-Public Use
  Company Number: 2004086456

PATIENT
  Age: 14 Day
  Sex: Female
  Weight: 3 kg

DRUGS (2)
  1. UNASYN [Suspect]
     Indication: INFECTION
     Dosage: 450 MG (2 IN 1 D), INTRAVENOUS
     Route: 042
     Dates: start: 20041017, end: 20041021
  2. CEFTRIAXONE [Concomitant]

REACTIONS (1)
  - SEPSIS [None]
